FAERS Safety Report 8373102-5 (Version None)
Quarter: 2012Q2

REPORT INFORMATION
  Report Type: 
  Country: None (occurrence: None)
  Receive Date: 20120521
  Receipt Date: 20120516
  Transmission Date: 20120825
  Serious: No
  Sender: FDA-Public Use
  Company Number: US-PFIZER INC-2012083463

PATIENT
  Sex: Male
  Weight: 17.2 kg

DRUGS (2)
  1. GENOTROPIN [Suspect]
     Indication: BLOOD GROWTH HORMONE DECREASED
     Dosage: UNK, 1X/DAY
     Route: 030
     Dates: start: 20120101, end: 20120401
  2. GENOTROPIN [Suspect]
     Indication: NOONAN SYNDROME

REACTIONS (4)
  - WEIGHT DECREASED [None]
  - NASOPHARYNGITIS [None]
  - INCORRECT ROUTE OF DRUG ADMINISTRATION [None]
  - OVERDOSE [None]
